FAERS Safety Report 17249403 (Version 1)
Quarter: 2020Q1

REPORT INFORMATION
  Report Type: Spontaneous
  Country: US (occurrence: US)
  Receive Date: 20200108
  Receipt Date: 20200108
  Transmission Date: 20200409
  Serious: No
  Sender: FDA-Public Use
  Company Number: US-GALDERMA-US19041146

PATIENT
  Age: 79 Year
  Sex: Female

DRUGS (12)
  1. VIT B 12 [Concomitant]
     Active Substance: CYANOCOBALAMIN
  2. NORVASC [Concomitant]
     Active Substance: AMLODIPINE BESYLATE
  3. PROACTIV MD ADAPALENE ACNE TREATMENT [Suspect]
     Active Substance: ADAPALENE
     Indication: DRY SKIN
     Dosage: 0.1%
     Route: 061
     Dates: start: 20190327, end: 20190328
  4. PROACTIV MD DEEP CLEANSING FACE WASH [Concomitant]
     Active Substance: COSMETICS
     Indication: DRY SKIN
     Route: 061
     Dates: start: 20190327, end: 20190328
  5. METFORMIN [Concomitant]
     Active Substance: METFORMIN HYDROCHLORIDE
  6. PROACTIV GREEN TEA MOISTURIZER [Concomitant]
     Active Substance: COSMETICS
     Indication: DRY SKIN
     Route: 061
     Dates: start: 20190327, end: 20190328
  7. OMEGA 3 [Concomitant]
     Active Substance: OMEGA-3 FATTY ACIDS
  8. PROACTIV MD DAILY OIL CONTROL SPF 30 [Suspect]
     Active Substance: AVOBENZONE\OCTISALATE\OCTOCRYLENE
     Indication: DRY SKIN
     Route: 061
     Dates: start: 20190327, end: 20190328
  9. PROACTIV DEEP CLEANSING WASH [Concomitant]
     Active Substance: SALICYLIC ACID
     Indication: DRY SKIN
     Route: 061
     Dates: start: 20190327, end: 20190328
  10. VITAMIN C [Concomitant]
     Active Substance: ASCORBIC ACID
  11. PROACTIV REDNESS RELIEF SERUM [Concomitant]
     Indication: DRY SKIN
     Route: 061
     Dates: start: 20190327, end: 20190328
  12. PROACTIV DETOX HYDROGEL FACE MASK [Concomitant]
     Indication: DRY SKIN
     Route: 061
     Dates: start: 20190327, end: 20190328

REACTIONS (2)
  - Pruritus [Recovered/Resolved]
  - Product use in unapproved indication [Recovered/Resolved]

NARRATIVE: CASE EVENT DATE: 20190327
